FAERS Safety Report 9542831 (Version 1)
Quarter: 2013Q3

REPORT INFORMATION
  Report Type: Spontaneous
  Country: US (occurrence: US)
  Receive Date: 20130923
  Receipt Date: 20130923
  Transmission Date: 20140515
  Serious: No
  Sender: FDA-Public Use
  Company Number: US-PFIZER INC-2013272497

PATIENT
  Age: 54 Year
  Sex: Female
  Weight: 102 kg

DRUGS (2)
  1. LIPITOR [Suspect]
     Indication: BLOOD CHOLESTEROL ABNORMAL
     Dosage: UNK, DAILY
     Dates: end: 20130903
  2. ATENOLOL [Concomitant]
     Indication: HYPERTENSION
     Dosage: 50MG DAILY

REACTIONS (1)
  - Headache [Recovered/Resolved]
